FAERS Safety Report 7918037-4 (Version None)
Quarter: 2011Q4

REPORT INFORMATION
  Report Type: 
  Country: None (occurrence: None)
  Receive Date: 20111116
  Receipt Date: 20111108
  Transmission Date: 20120403
  Serious: Yes (Hospitalization)
  Sender: FDA-Public Use
  Company Number: JP-MERCK-1111USA00116

PATIENT
  Age: 82 Year
  Sex: Female

DRUGS (4)
  1. ACARBOSE [Concomitant]
     Dosage: DOSAGE IS UNCERTAIN DURING A DAY
     Route: 048
  2. NOVORAPID [Concomitant]
     Dosage: DOSAGE IS UNCERTAIN DURING A DAY
     Route: 065
  3. JANUVIA [Suspect]
     Indication: DIABETES MELLITUS
     Dosage: DOSAGE IS UNCERTAIN DURING A DAY
     Route: 048
  4. PREDNISOLONE [Concomitant]
     Indication: POLYMYALGIA RHEUMATICA
     Dosage: DOSAGE IS UNCERTAIN DURING A DAY
     Route: 048

REACTIONS (2)
  - HYPERGLYCAEMIA [None]
  - DIABETES WITH HYPEROSMOLARITY [None]
